FAERS Safety Report 22017928 (Version 1)
Quarter: 2023Q1

REPORT INFORMATION
  Report Type: Spontaneous
  Country: US (occurrence: US)
  Receive Date: 20230221
  Receipt Date: 20230221
  Transmission Date: 20230417
  Serious: No
  Sender: FDA-Public Use
  Company Number: US-PFIZER INC-PV202300008006

PATIENT
  Age: 23 Year
  Sex: Female

DRUGS (2)
  1. CIBINQO [Suspect]
     Active Substance: ABROCITINIB
     Indication: Dermatitis atopic
     Dosage: 50 MG, 1X/DAY
     Route: 048
  2. CIBINQO [Suspect]
     Active Substance: ABROCITINIB
     Dosage: 25 MG (1/2 OF 50 MG TABLET), 1X/DAY
     Route: 048

REACTIONS (3)
  - Streptococcal infection [Unknown]
  - Off label use [Unknown]
  - Wrong technique in product usage process [Unknown]
